FAERS Safety Report 17647119 (Version 1)
Quarter: 2020Q2

REPORT INFORMATION
  Report Type: Report from Study
  Country: None (occurrence: US)
  Receive Date: 20200408
  Receipt Date: 20200408
  Transmission Date: 20200713
  Serious: No
  Sender: FDA-Public Use
  Company Number: US-BIOVITRUM-2019US3288

PATIENT
  Sex: Female

DRUGS (3)
  1. KINERET [Suspect]
     Active Substance: ANAKINRA
     Indication: ARTHRITIS
  2. KINERET [Suspect]
     Active Substance: ANAKINRA
     Indication: PYREXIA
  3. KINERET [Suspect]
     Active Substance: ANAKINRA
     Indication: STILL^S DISEASE
     Route: 058

REACTIONS (5)
  - Frustration tolerance decreased [Unknown]
  - Condition aggravated [Unknown]
  - Sinusitis [Unknown]
  - Off label use [Unknown]
  - Drug ineffective [Unknown]
